FAERS Safety Report 4342309-6 (Version None)
Quarter: 2004Q2

REPORT INFORMATION
  Report Type: 
  Country: None (occurrence: None)
  Receive Date: 20040416
  Receipt Date: 20040407
  Transmission Date: 20050107
  Serious: Yes (Other)
  Sender: FDA-Public Use
  Company Number: HQWYE407209APR04

PATIENT
  Age: 17 Year
  Sex: Male
  Weight: 69 kg

DRUGS (1)
  1. ZOSYN [Suspect]
     Indication: PERITONITIS BACTERIAL
     Dosage: 3.375 MG 1X PER 6 HR, INTRAVENOUS
     Route: 042
     Dates: start: 20040402, end: 20040403

REACTIONS (1)
  - ANAEMIA HAEMOLYTIC AUTOIMMUNE [None]
